FAERS Safety Report 20190024 (Version 1)
Quarter: 2021Q4

REPORT INFORMATION
  Report Type: Spontaneous
  Country: PH (occurrence: PH)
  Receive Date: 20211215
  Receipt Date: 20211215
  Transmission Date: 20220303
  Serious: Yes (Death)
  Sender: FDA-Public Use
  Company Number: PH-PFIZER INC-202101715420

PATIENT

DRUGS (2)
  1. PALBOCICLIB [Suspect]
     Active Substance: PALBOCICLIB
     Dosage: UNK
  2. FULVESTRANT [Concomitant]
     Active Substance: FULVESTRANT
     Dosage: UNK

REACTIONS (2)
  - Hepatic enzyme increased [Fatal]
  - Blood bilirubin increased [Fatal]
